FAERS Safety Report 20860358 (Version 1)
Quarter: 2022Q2

REPORT INFORMATION
  Report Type: Spontaneous
  Country: US (occurrence: None)
  Receive Date: 20220520
  Receipt Date: 20220520
  Transmission Date: 20220720
  Serious: Yes (Hospitalization)
  Sender: FDA-Public Use
  Company Number: None

PATIENT
  Sex: Female

DRUGS (1)
  1. SILDENAFIL CITRATE [Suspect]
     Active Substance: SILDENAFIL CITRATE
     Indication: Pulmonary arterial hypertension
     Dosage: OTHER FREQUENCY : 4 TIMES DAILY ;?
     Route: 048
     Dates: start: 202201

REACTIONS (2)
  - Oxygen saturation decreased [None]
  - Dyspnoea [None]
